FAERS Safety Report 12097535 (Version 1)
Quarter: 2016Q1

REPORT INFORMATION
  Report Type: Other
  Country: US (occurrence: US)
  Receive Date: 20160221
  Receipt Date: 20160221
  Transmission Date: 20160526
  Serious: No
  Sender: FDA-Public Use
  Company Number: US-ACORDA-ACO_111057_2015

PATIENT
  Sex: Male

DRUGS (2)
  1. REBIF [Concomitant]
     Active Substance: INTERFERON BETA-1A
     Indication: PRODUCT USED FOR UNKNOWN INDICATION
  2. AMPYRA [Suspect]
     Active Substance: DALFAMPRIDINE
     Indication: PRODUCT USED FOR UNKNOWN INDICATION
     Dosage: 10 MG, BID
     Route: 048

REACTIONS (7)
  - Injection site reaction [Unknown]
  - Clostridium difficile infection [Unknown]
  - Oedema peripheral [Unknown]
  - Urinary tract infection [Unknown]
  - Hypertension [Unknown]
  - Skin ulcer [Unknown]
  - Therapy cessation [Unknown]
